FAERS Safety Report 4631875-9 (Version None)
Quarter: 2005Q2

REPORT INFORMATION
  Report Type: 
  Country: None (occurrence: None)
  Receive Date: 20050328
  Receipt Date: 20041221
  Transmission Date: 20051028
  Serious: Yes (Hospitalization, Other)
  Sender: FDA-Public Use
  Company Number: 2004-0007874

PATIENT
  Age: 34 Year
  Sex: Male
  Weight: 50.8029 kg

DRUGS (11)
  1. VIREAD [Suspect]
     Indication: HIV INFECTION
     Dosage: 300 MG, 1 IN 1
     Dates: start: 20040301, end: 20041020
  2. TRUVADA [Suspect]
     Indication: HIV INFECTION
     Dosage: 1 DOSAGE FORMS, 1 IN 1 D
     Dates: start: 20041020, end: 20041108
  3. FOSAMPRENAVIR (FOSAMPRENAVIR) [Concomitant]
  4. RITONAVIR (RITONAVIR) [Concomitant]
  5. DDI (DIDANOSINE) [Concomitant]
  6. MARINOL [Concomitant]
  7. TMP-SMX (BACTRIM) [Concomitant]
  8. FLUCONAZOLE (AZITHROMYCIN) [Concomitant]
  9. AZITHROMYCIN [Concomitant]
  10. LAMIVUDINE [Concomitant]
  11. NEVIRAPINE [Concomitant]

REACTIONS (2)
  - FANCONI SYNDROME ACQUIRED [None]
  - RENAL FAILURE ACUTE [None]
